FAERS Safety Report 7773374-1 (Version None)
Quarter: 2011Q3

REPORT INFORMATION
  Report Type: 
  Country: None (occurrence: None)
  Receive Date: 20110922
  Receipt Date: 20110913
  Transmission Date: 20111222
  Serious: Yes (Hospitalization)
  Sender: FDA-Public Use
  Company Number: US-ASTRAZENECA-2010SE47631

PATIENT
  Age: 83 Year
  Sex: Female

DRUGS (3)
  1. NEXIUM [Suspect]
     Route: 048
  2. COUMADIN [Concomitant]
  3. SYNTHROID [Interacting]
     Route: 065

REACTIONS (4)
  - WRONG DRUG ADMINISTERED [None]
  - ATRIAL FIBRILLATION [None]
  - POTENTIATING DRUG INTERACTION [None]
  - THYROID FUNCTION TEST ABNORMAL [None]
